FAERS Safety Report 7551430-0 (Version None)
Quarter: 2011Q2

REPORT INFORMATION
  Report Type: 
  Country: None (occurrence: None)
  Receive Date: 20110616
  Receipt Date: 20110601
  Transmission Date: 20111010
  Serious: Yes (Hospitalization)
  Sender: FDA-Public Use
  Company Number: CA-JNJFOC-20110410205

PATIENT
  Sex: Female
  Weight: 63.5 kg

DRUGS (7)
  1. ATACAND [Concomitant]
  2. IMURAN [Concomitant]
  3. REMICADE [Suspect]
     Indication: CROHN'S DISEASE
     Dosage: DAILY DOSE: EVERY 6-8 WEEKS
     Route: 042
     Dates: start: 20080505
  4. CHOLESTYRAMINE [Concomitant]
  5. INDAPAMIDE [Concomitant]
  6. PREVACID [Concomitant]
  7. VALTREX [Concomitant]

REACTIONS (1)
  - CHOLELITHIASIS [None]
